FAERS Safety Report 18367295 (Version 2)
Quarter: 2020Q4

REPORT INFORMATION
  Report Type: Spontaneous
  Country: CH (occurrence: CH)
  Receive Date: 20201009
  Receipt Date: 20201013
  Transmission Date: 20210114
  Serious: Yes (Hospitalization, Disabling)
  Sender: FDA-Public Use
  Company Number: CH-CELGENEUS-CHE-20201001597

PATIENT
  Age: 74 Year
  Sex: Male

DRUGS (13)
  1. TRAMADOL. [Concomitant]
     Active Substance: TRAMADOL
     Indication: PRODUCT USED FOR UNKNOWN INDICATION
     Route: 048
  2. LIDOCAINE. [Concomitant]
     Active Substance: LIDOCAINE
     Indication: PRODUCT USED FOR UNKNOWN INDICATION
     Route: 062
  3. ABRAXANE [Suspect]
     Active Substance: PACLITAXEL
     Indication: CYSTADENOCARCINOMA PANCREAS
     Dosage: CYCLICAL
     Route: 041
     Dates: start: 20200818, end: 20200902
  4. PREGABALINE [Concomitant]
     Active Substance: PREGABALIN
     Indication: PRODUCT USED FOR UNKNOWN INDICATION
     Route: 048
  5. TAMSULOSINE [Concomitant]
     Active Substance: TAMSULOSIN HYDROCHLORIDE
     Indication: PRODUCT USED FOR UNKNOWN INDICATION
     Route: 048
  6. LIXIANA [Concomitant]
     Active Substance: EDOXABAN TOSYLATE
     Indication: PRODUCT USED FOR UNKNOWN INDICATION
     Route: 048
  7. GEMCITABINE. [Suspect]
     Active Substance: GEMCITABINE
     Dosage: CYCLICAL
     Route: 041
     Dates: start: 201803, end: 201803
  8. GEMCITABINE. [Suspect]
     Active Substance: GEMCITABINE
     Dosage: CYCLICAL
     Route: 041
     Dates: start: 20200818, end: 20200902
  9. ESOMEPRAZOLE. [Concomitant]
     Active Substance: ESOMEPRAZOLE MAGNESIUM
     Indication: PRODUCT USED FOR UNKNOWN INDICATION
     Route: 048
  10. ABRAXANE [Suspect]
     Active Substance: PACLITAXEL
     Dosage: CYCLICAL
     Route: 041
     Dates: start: 20200916
  11. GEMCITABINE. [Suspect]
     Active Substance: GEMCITABINE
     Indication: BLADDER TRANSITIONAL CELL CARCINOMA STAGE IV
     Dosage: CYCLICAL
     Route: 041
     Dates: start: 201711, end: 201711
  12. GEMCITABINE. [Suspect]
     Active Substance: GEMCITABINE
     Dosage: CYCLICAL
     Route: 041
     Dates: start: 20200916
  13. ATORVASTATIN [Concomitant]
     Active Substance: ATORVASTATIN
     Indication: PRODUCT USED FOR UNKNOWN INDICATION
     Route: 048

REACTIONS (2)
  - Diarrhoea [Recovered/Resolved]
  - Colitis [Unknown]

NARRATIVE: CASE EVENT DATE: 20200904
